FAERS Safety Report 12797740 (Version 1)
Quarter: 2016Q3

REPORT INFORMATION
  Report Type: Spontaneous
  Country: US (occurrence: US)
  Receive Date: 20160929
  Receipt Date: 20160929
  Transmission Date: 20161109
  Serious: No
  Sender: FDA-Public Use
  Company Number: None

PATIENT
  Age: 77 Year
  Sex: Male

DRUGS (2)
  1. CAPECITABINE TAB 500MG [Suspect]
     Active Substance: CAPECITABINE
     Indication: PANCREATIC CARCINOMA
     Dosage: 2500MG BID X 14 DAYS PO
     Route: 048
     Dates: start: 20160401, end: 201607
  2. CAPECITABINE TAB 500MG [Suspect]
     Active Substance: CAPECITABINE
     Indication: B-CELL LYMPHOMA
     Dosage: 2500MG BID X 14 DAYS PO
     Route: 048
     Dates: start: 20160401, end: 201607

REACTIONS (8)
  - Skin exfoliation [None]
  - Nail disorder [None]
  - Asthenia [None]
  - Fatigue [None]
  - Hypoaesthesia [None]
  - Palmar-plantar erythrodysaesthesia syndrome [None]
  - Sensory disturbance [None]
  - Nausea [None]

NARRATIVE: CASE EVENT DATE: 20160601
